FAERS Safety Report 5412178-1 (Version None)
Quarter: 2007Q3

REPORT INFORMATION
  Report Type: 
  Country: None (occurrence: None)
  Receive Date: 20070813
  Receipt Date: 20070806
  Transmission Date: 20080115
  Serious: Yes (Hospitalization)
  Sender: FDA-Public Use
  Company Number: FR-BRISTOL-MYERS SQUIBB COMPANY-13872940

PATIENT
  Age: 60 Year
  Sex: Female

DRUGS (2)
  1. ERBITUX [Suspect]
     Indication: PHARYNGEAL CANCER STAGE UNSPECIFIED
     Route: 042
     Dates: start: 20070612
  2. TETRACYCLINE HCL [Suspect]
     Indication: PROPHYLAXIS
     Dates: start: 20070612

REACTIONS (2)
  - HAEMATURIA [None]
  - THROMBOCYTOPENIA [None]
